FAERS Safety Report 8690986 (Version 2)
Quarter: 2013Q4

REPORT INFORMATION
  Report Type: Spontaneous
  Country: US (occurrence: US)
  Receive Date: 20120730
  Receipt Date: 20131106
  Transmission Date: 20140711
  Serious: Yes (Hospitalization, Other)
  Sender: FDA-Public Use
  Company Number: US-009507513-1207USA010556

PATIENT
  Age: 75 Year
  Sex: Male

DRUGS (2)
  1. ZOCOR [Suspect]
     Route: 048
  2. CORDARONE [Suspect]
     Dosage: 200 MG, QD
     Route: 048

REACTIONS (2)
  - Pulmonary arterial hypertension [Unknown]
  - Interstitial lung disease [Unknown]
